FAERS Safety Report 8524865-7 (Version None)
Quarter: 2012Q3

REPORT INFORMATION
  Report Type: 
  Country: None (occurrence: None)
  Receive Date: 20120720
  Receipt Date: 20120717
  Transmission Date: 20120928
  Serious: Yes (Death, Hospitalization)
  Sender: FDA-Public Use
  Company Number: PHHY2012US061579

PATIENT
  Age: 58 Year
  Sex: Male

DRUGS (1)
  1. AMIODARONE HCL [Suspect]
     Indication: CONGESTIVE CARDIOMYOPATHY
     Dosage: 400 MG, DAILY

REACTIONS (8)
  - LYMPHADENOPATHY [None]
  - LYMPHOID TISSUE HYPERPLASIA [None]
  - LUNG NEOPLASM [None]
  - DEATH [None]
  - COUGH [None]
  - FATIGUE [None]
  - BRADYCARDIA [None]
  - INTERSTITIAL LUNG DISEASE [None]
